FAERS Safety Report 19309197 (Version 1)
Quarter: 2021Q2

REPORT INFORMATION
  Report Type: Spontaneous
  Country: US (occurrence: US)
  Receive Date: 20210525
  Receipt Date: 20210525
  Transmission Date: 20210717
  Serious: Yes (Other)
  Sender: FDA-Public Use
  Company Number: US-GLAXOSMITHKLINE-US2021GSK109452

PATIENT
  Sex: Female

DRUGS (28)
  1. ZANTAC [Suspect]
     Active Substance: RANITIDINE HYDROCHLORIDE
     Indication: URTICARIA
  2. RANITIDINE. [Suspect]
     Active Substance: RANITIDINE
     Indication: ABDOMINAL DISCOMFORT
  3. ZANTAC [Suspect]
     Active Substance: RANITIDINE HYDROCHLORIDE
     Indication: DYSPEPSIA
     Dosage: UNK, BID
     Route: 065
     Dates: start: 200801, end: 202007
  4. ZANTAC [Suspect]
     Active Substance: RANITIDINE HYDROCHLORIDE
     Indication: MULTIPLE ALLERGIES
  5. RANITIDINE. [Suspect]
     Active Substance: RANITIDINE
     Indication: DYSPEPSIA
     Dosage: UNK, BID
     Route: 065
     Dates: start: 202001, end: 202007
  6. ZANTAC [Suspect]
     Active Substance: RANITIDINE HYDROCHLORIDE
     Indication: MULTIPLE ALLERGIES
  7. ZANTAC [Suspect]
     Active Substance: RANITIDINE HYDROCHLORIDE
     Indication: URTICARIA
  8. RANITIDINE. [Suspect]
     Active Substance: RANITIDINE
     Indication: DYSPEPSIA
     Dosage: UNK, BID
     Route: 065
     Dates: start: 202001, end: 202007
  9. ZANTAC [Suspect]
     Active Substance: RANITIDINE HYDROCHLORIDE
     Indication: ABDOMINAL DISCOMFORT
  10. RANITIDINE CAPSULE [Suspect]
     Active Substance: RANITIDINE
     Indication: DYSPEPSIA
     Dosage: UNK, BID
     Route: 065
     Dates: start: 202001, end: 202007
  11. RANITIDINE CAPSULE [Suspect]
     Active Substance: RANITIDINE
     Indication: ABDOMINAL DISCOMFORT
     Dosage: UNK, BID
     Route: 065
     Dates: start: 200801, end: 202007
  12. RANITIDINE. [Suspect]
     Active Substance: RANITIDINE
     Indication: MULTIPLE ALLERGIES
  13. ZANTAC [Suspect]
     Active Substance: RANITIDINE HYDROCHLORIDE
     Indication: DYSPEPSIA
     Dosage: UNK, BID
     Route: 065
     Dates: start: 200801, end: 202007
  14. ZANTAC [Suspect]
     Active Substance: RANITIDINE HYDROCHLORIDE
     Indication: ABDOMINAL DISCOMFORT
  15. ZANTAC [Suspect]
     Active Substance: RANITIDINE HYDROCHLORIDE
     Indication: ABDOMINAL DISCOMFORT
  16. ZANTAC [Suspect]
     Active Substance: RANITIDINE HYDROCHLORIDE
     Indication: DYSPEPSIA
     Dosage: UNK, BID
     Route: 065
     Dates: start: 200801, end: 202007
  17. RANITIDINE CAPSULE [Suspect]
     Active Substance: RANITIDINE
     Indication: URTICARIA
  18. RANITIDINE. [Suspect]
     Active Substance: RANITIDINE
     Indication: ABDOMINAL DISCOMFORT
  19. RANITIDINE. [Suspect]
     Active Substance: RANITIDINE
     Indication: ABDOMINAL DISCOMFORT
  20. ZANTAC [Suspect]
     Active Substance: RANITIDINE HYDROCHLORIDE
     Indication: MULTIPLE ALLERGIES
  21. ZANTAC [Suspect]
     Active Substance: RANITIDINE HYDROCHLORIDE
     Indication: URTICARIA
  22. RANITIDINE CAPSULE [Suspect]
     Active Substance: RANITIDINE
     Indication: MULTIPLE ALLERGIES
  23. RANITIDINE. [Suspect]
     Active Substance: RANITIDINE
     Indication: MULTIPLE ALLERGIES
  24. RANITIDINE. [Suspect]
     Active Substance: RANITIDINE
     Indication: DYSPEPSIA
     Dosage: UNK, BID
     Route: 065
     Dates: start: 202001, end: 202007
  25. RANITIDINE. [Suspect]
     Active Substance: RANITIDINE
     Indication: MULTIPLE ALLERGIES
  26. RANITIDINE. [Suspect]
     Active Substance: RANITIDINE
     Indication: URTICARIA
  27. RANITIDINE. [Suspect]
     Active Substance: RANITIDINE
     Indication: URTICARIA
  28. RANITIDINE. [Suspect]
     Active Substance: RANITIDINE
     Indication: URTICARIA

REACTIONS (1)
  - Breast cancer [Unknown]
